FAERS Safety Report 19070319 (Version 3)
Quarter: 2021Q3

REPORT INFORMATION
  Report Type: Spontaneous
  Country: DE (occurrence: DE)
  Receive Date: 20210329
  Receipt Date: 20210721
  Transmission Date: 20211014
  Serious: Yes (Hospitalization)
  Sender: FDA-Public Use
  Company Number: DE-US-PROVELL PHARMACEUTICALS LLC-9222731

PATIENT
  Sex: Female
  Weight: 53 kg

DRUGS (1)
  1. EUTHYROX [Suspect]
     Active Substance: LEVOTHYROXINE SODIUM
     Indication: POST PROCEDURAL HYPOTHYROIDISM
     Dosage: SWITCH BETWEEN 100 UG AND 75 UG, WAS ALSO ON 88 UG

REACTIONS (23)
  - Decreased appetite [Not Recovered/Not Resolved]
  - Drug intolerance [Unknown]
  - Headache [Unknown]
  - Peripheral coldness [Unknown]
  - Anxiety [Not Recovered/Not Resolved]
  - Thyroid function test abnormal [Unknown]
  - Blood thyroid stimulating hormone abnormal [Unknown]
  - Blood pressure fluctuation [Unknown]
  - Inappropriate schedule of product administration [Unknown]
  - Gait disturbance [Not Recovered/Not Resolved]
  - Hypothyroidism [Unknown]
  - Feeling abnormal [Unknown]
  - Nausea [Not Recovered/Not Resolved]
  - Cough [Not Recovered/Not Resolved]
  - Restlessness [Unknown]
  - Weight decreased [Unknown]
  - Hyperhidrosis [Unknown]
  - Listless [Not Recovered/Not Resolved]
  - Blood thyroid stimulating hormone increased [Unknown]
  - Feeling jittery [Unknown]
  - Head discomfort [Unknown]
  - Gait disturbance [Unknown]
  - Malaise [Unknown]
